FAERS Safety Report 4284317-X (Version None)
Quarter: 2004Q1

REPORT INFORMATION
  Report Type: 
  Country: None (occurrence: None)
  Receive Date: 20040130
  Receipt Date: 20040113
  Transmission Date: 20041129
  Serious: Yes (Other)
  Sender: FDA-Public Use
  Company Number: USA031152981

PATIENT
  Age: 8 Year
  Sex: Female

DRUGS (1)
  1. STRATTERA [Suspect]
     Indication: ATTENTION DEFICIT/HYPERACTIVITY DISORDER
     Dosage: 40 MG/DAY
     Dates: start: 20030509, end: 20031115

REACTIONS (4)
  - APNOEA [None]
  - CONVULSION [None]
  - LOSS OF CONSCIOUSNESS [None]
  - TONIC CLONIC MOVEMENTS [None]
